FAERS Safety Report 8613495-4 (Version None)
Quarter: 2012Q3

REPORT INFORMATION
  Report Type: 
  Country: None (occurrence: None)
  Receive Date: 20120823
  Receipt Date: 20120807
  Transmission Date: 20120928
  Serious: Yes (Other)
  Sender: FDA-Public Use
  Company Number: JP-009507513-1208JPN003960

PATIENT

DRUGS (6)
  1. PEG-INTRON [Suspect]
     Indication: HEPATITIS C
     Dosage: 1.5MCG/KG/WEEK
     Route: 058
     Dates: start: 20120424
  2. REBETOL [Suspect]
     Route: 048
     Dates: end: 20120613
  3. REBETOL [Suspect]
     Indication: HEPATITIS C
     Route: 048
     Dates: start: 20120424
  4. TELAVIC [Suspect]
     Indication: HEPATITIS C
     Route: 048
     Dates: start: 20120424, end: 20120606
  5. REBETOL [Suspect]
     Route: 048
     Dates: start: 20120523
  6. REBETOL [Suspect]
     Route: 048
     Dates: start: 20120614

REACTIONS (1)
  - RENAL IMPAIRMENT [None]
